FAERS Safety Report 5785960-9 (Version None)
Quarter: 2008Q2

REPORT INFORMATION
  Report Type: 
  Country: None (occurrence: None)
  Receive Date: 20080619
  Receipt Date: 20080619
  Transmission Date: 20081010
  Serious: Yes (Death, Hospitalization)
  Sender: FDA-Public Use
  Company Number: 2008001207

PATIENT
  Age: 55 Year
  Sex: Male

DRUGS (8)
  1. ERLOTINIB (ERLOTINIB) (TABLET) (ERLOTINIB) [Suspect]
     Indication: LUNG ADENOCARCINOMA
     Dosage: (150 MG, QD), ORAL
     Route: 048
     Dates: start: 20080414, end: 20080509
  2. PREDONINE (PREDNISOLONE) [Concomitant]
  3. LANSOPRAZOLE [Concomitant]
  4. VOLTAREN [Concomitant]
  5. CODEINE PHOSPHATE (CODEINE PHOSPHATE) [Concomitant]
  6. MUCODYNE (CARBOCISTEINE) [Concomitant]
  7. FERRIC PYROPHOSPHATE (FERRIC PYROPHOSPHATE) [Concomitant]
  8. LOPERAMIDE HCL [Concomitant]

REACTIONS (3)
  - DIARRHOEA [None]
  - DISEASE PROGRESSION [None]
  - PNEUMOTHORAX [None]
